FAERS Safety Report 8886210 (Version 2)
Quarter: 2013Q1

REPORT INFORMATION
  Report Type: Spontaneous
  Country: US (occurrence: US)
  Receive Date: 20121105
  Receipt Date: 20130205
  Transmission Date: 20140127
  Serious: Yes (Other)
  Sender: FDA-Public Use
  Company Number: US-PFIZER INC-2012273989

PATIENT
  Sex: Female

DRUGS (2)
  1. LYRICA [Suspect]
     Indication: EPILEPSY
     Dosage: 300 MG, 2X/DAY
     Route: 048
     Dates: start: 2012
  2. ALENDRONATE SODIUM [Concomitant]
     Dosage: 70 MG, WEEKLY

REACTIONS (1)
  - Drug ineffective [Not Recovered/Not Resolved]
